FAERS Safety Report 17947578 (Version 1)
Quarter: 2020Q2

REPORT INFORMATION
  Report Type: Spontaneous
  Country: US (occurrence: US)
  Receive Date: 20200624
  Receipt Date: 20200624
  Transmission Date: 20200714
  Serious: Yes (Life-Threatening, Disabling, Other)
  Sender: FDA-Public Use
  Company Number: None

PATIENT
  Age: 31 Year
  Sex: Male
  Weight: 81.65 kg

DRUGS (11)
  1. JUVEDERM [Suspect]
     Active Substance: HYALURONIC ACID
  2. TYLENOL [Concomitant]
     Active Substance: ACETAMINOPHEN
  3. BOTOX [Suspect]
     Active Substance: ONABOTULINUMTOXINA
     Indication: FACIAL PARALYSIS
     Dosage: ??          OTHER FREQUENCY:ONE TREATMENT;OTHER ROUTE:INJECTION?
     Route: 030
     Dates: start: 20200416, end: 20200416
  4. ANTIBIOTICS [Concomitant]
     Active Substance: UNSPECIFIED INGREDIENT
  5. BOTOX [Suspect]
     Active Substance: ONABOTULINUMTOXINA
     Indication: NERVE INJURY
     Dosage: ??          OTHER FREQUENCY:ONE TREATMENT;OTHER ROUTE:INJECTION?
     Route: 030
     Dates: start: 20200416, end: 20200416
  6. EXCEDRIN [Concomitant]
     Active Substance: ACETAMINOPHEN\ASPIRIN\CAFFEINE
  7. AMOXICILLIN. [Concomitant]
     Active Substance: AMOXICILLIN
  8. BENADRYL [Concomitant]
     Active Substance: DIPHENHYDRAMINE HYDROCHLORIDE
  9. CLARITON [Concomitant]
     Active Substance: UNSPECIFIED INGREDIENT
  10. BOTOX [Suspect]
     Active Substance: ONABOTULINUMTOXINA
     Indication: MUSCLE ATROPHY
     Dosage: ??          OTHER FREQUENCY:ONE TREATMENT;OTHER ROUTE:INJECTION?
     Route: 030
     Dates: start: 20200416, end: 20200416
  11. MOTRIN [Concomitant]
     Active Substance: IBUPROFEN

REACTIONS (15)
  - Wrong product administered [None]
  - Product tampering [None]
  - Lip swelling [None]
  - Victim of crime [None]
  - Swelling face [None]
  - Infection [None]
  - Headache [None]
  - Dizziness [None]
  - Contusion [None]
  - Muscle injury [None]
  - Pain in jaw [None]
  - Facial pain [None]
  - Product contamination [None]
  - Lip pain [None]
  - Nausea [None]

NARRATIVE: CASE EVENT DATE: 20200416
